FAERS Safety Report 17532508 (Version 1)
Quarter: 2020Q1

REPORT INFORMATION
  Report Type: Spontaneous
  Country: US (occurrence: US)
  Receive Date: 20200304
  Receipt Date: 20200304
  Transmission Date: 20200409
  Serious: Yes (Hospitalization)
  Sender: FDA-Public Use
  Company Number: None

PATIENT
  Sex: Female
  Weight: 99.91 kg

DRUGS (8)
  1. MULTI-VITAMIN [Concomitant]
     Active Substance: .ALPHA.-TOCOPHEROL ACETATE, DL-\ASCORBIC ACID\CYANOCOBALAMIN\FLUORIDE ION\FOLIC ACID\NIACIN\PYRIDOXINE\RIBOFLAVIN\THIAMINE\VITAMIN A\VITAMIN D
  2. ATIVAN [Concomitant]
     Active Substance: LORAZEPAM
  3. ASPIRIN. [Suspect]
     Active Substance: ASPIRIN
     Dates: end: 20200224
  4. HEMOCYTE [Concomitant]
  5. POTASSIUM [Concomitant]
     Active Substance: POTASSIUM
  6. TAMOXIFEN [Concomitant]
     Active Substance: TAMOXIFEN
  7. TOPICAL LIDOCAIN [Concomitant]
  8. LASIX [Concomitant]
     Active Substance: FUROSEMIDE

REACTIONS (1)
  - Gait disturbance [None]

NARRATIVE: CASE EVENT DATE: 20200225
